FAERS Safety Report 4889086-8 (Version None)
Quarter: 2005Q4

REPORT INFORMATION
  Report Type: 
  Country: None (occurrence: None)
  Receive Date: 20051216
  Receipt Date: 20050922
  Transmission Date: 20060501
  Serious: No
  Sender: FDA-Public Use
  Company Number: USA0509108836

PATIENT
  Sex: Male

DRUGS (6)
  1. CIALIS [Suspect]
     Indication: ERECTILE DYSFUNCTION
     Dosage: 20 MG
     Dates: start: 20050817, end: 20050817
  2. MULTI-VITAMIN [Concomitant]
  3. COUGH SYRUP [Concomitant]
  4. ATENOLOL [Concomitant]
  5. ADVIL [Concomitant]
  6. OVER THE COUNTER ALLERGY PILLS [Concomitant]

REACTIONS (1)
  - THERAPEUTIC RESPONSE DECREASED [None]
